FAERS Safety Report 5179422-X (Version None)
Quarter: 2006Q4

REPORT INFORMATION
  Report Type: 
  Country: None (occurrence: None)
  Receive Date: 20061219
  Receipt Date: 20061214
  Transmission Date: 20070319
  Serious: Yes (Hospitalization)
  Sender: FDA-Public Use
  Company Number: GB-ROCHE-475078

PATIENT
  Age: 54 Year
  Sex: Male
  Weight: 69 kg

DRUGS (3)
  1. CAPECITABINE [Suspect]
     Dosage: AS PER PROTOCOL
     Route: 048
  2. CAPECITABINE [Suspect]
     Dosage: LOWERED DOSE
     Route: 048
  3. GEMCITABINE [Suspect]
     Dosage: GIVEN ON DAQYS 1 AND 8
     Route: 042

REACTIONS (2)
  - BLOOD GLUCOSE INCREASED [None]
  - HYPERTENSION [None]
